FAERS Safety Report 16686848 (Version 1)
Quarter: 2019Q3

REPORT INFORMATION
  Report Type: Spontaneous
  Country: US (occurrence: US)
  Receive Date: 20190809
  Receipt Date: 20190809
  Transmission Date: 20191004
  Serious: No
  Sender: FDA-Public Use
  Company Number: US-ASSERTIO THERAPEUTICS, INC.-US-2018DEP001983

PATIENT

DRUGS (1)
  1. ZIPSOR [Suspect]
     Active Substance: DICLOFENAC POTASSIUM
     Indication: MIGRAINE WITHOUT AURA
     Dosage: 25 MG, QID
     Route: 048
     Dates: start: 20180718

REACTIONS (1)
  - Dyspnoea exertional [Unknown]

NARRATIVE: CASE EVENT DATE: 2018
